FAERS Safety Report 6188245-4 (Version None)
Quarter: 2009Q2

REPORT INFORMATION
  Report Type: 
  Country: None (occurrence: None)
  Receive Date: 20090513
  Receipt Date: 20090504
  Transmission Date: 20091009
  Serious: Yes (Hospitalization)
  Sender: FDA-Public Use
  Company Number: US-BIOGENIDEC-2006BI000044

PATIENT
  Age: 58 Year
  Sex: Female
  Weight: 86 kg

DRUGS (2)
  1. AVONEX [Suspect]
     Indication: MULTIPLE SCLEROSIS
     Route: 030
     Dates: start: 20000101, end: 20020719
  2. AVONEX [Suspect]
     Route: 030
     Dates: start: 20040409, end: 20051119

REACTIONS (3)
  - DYSGRAPHIA [None]
  - MUSCULAR WEAKNESS [None]
  - NECROTISING FASCIITIS [None]
